FAERS Safety Report 7126657-2 (Version None)
Quarter: 2010Q4

REPORT INFORMATION
  Report Type: 
  Country: None (occurrence: None)
  Receive Date: 20101129
  Receipt Date: 20101119
  Transmission Date: 20110411
  Serious: Yes (Hospitalization, Other)
  Sender: FDA-Public Use
  Company Number: US-ABBOTT-10P-163-0687007-00

PATIENT
  Sex: Female
  Weight: 70.37 kg

DRUGS (20)
  1. HUMIRA [Suspect]
     Indication: CROHN'S DISEASE
     Dates: start: 20100316, end: 20100316
  2. HUMIRA [Suspect]
     Dates: start: 20100330, end: 20100330
  3. HUMIRA [Suspect]
     Route: 050
     Dates: start: 20100401, end: 20100801
  4. PRENATAL VITAMINS [Concomitant]
     Indication: PRODUCT USED FOR UNKNOWN INDICATION
     Route: 048
     Dates: start: 20100115, end: 20100122
  5. PRENATAL VITAMINS [Concomitant]
     Route: 048
     Dates: start: 20100531, end: 20100708
  6. ENSURE [Concomitant]
     Indication: NUTRITIONAL SUPPORT
     Route: 048
     Dates: start: 20100121, end: 20100515
  7. CAFFEINE [Concomitant]
     Indication: PRODUCT USED FOR UNKNOWN INDICATION
     Dosage: 3.5 SERVINGS WEEKLY OF SODA
     Route: 048
     Dates: start: 20100122, end: 20100321
  8. CAFFEINE [Concomitant]
     Dosage: 2 SERVINGS OF SODA DAILY
     Route: 048
     Dates: start: 20091113, end: 20100121
  9. CAFFEINE [Concomitant]
     Dosage: 1 SERVING OF SODA DAILY
     Route: 048
     Dates: start: 20100322, end: 20100531
  10. CAFFEINE [Concomitant]
     Dosage: 1.5 SERVINGS OF SODA DAILY
     Route: 048
     Dates: start: 20100708, end: 20100801
  11. COFFEE [Concomitant]
     Indication: PRODUCT USED FOR UNKNOWN INDICATION
     Dosage: 1 SERVING DAILY
     Route: 048
     Dates: start: 20091113, end: 20100121
  12. COFFEE [Concomitant]
     Dosage: 2 SERVINGS TOTAL
     Route: 048
     Dates: start: 20100322, end: 20100405
  13. PREDNISONE [Concomitant]
     Indication: CROHN'S DISEASE
     Route: 048
     Dates: start: 20100307, end: 20100313
  14. PREDNISONE [Concomitant]
     Route: 048
     Dates: start: 20100228, end: 20100308
  15. PREDNISONE [Concomitant]
     Route: 048
     Dates: start: 20100221, end: 20100227
  16. PREDNISONE [Concomitant]
     Route: 048
     Dates: start: 20100314, end: 20100321
  17. PREDNISONE [Concomitant]
     Route: 048
     Dates: start: 20100322, end: 20100325
  18. PREDNISONE [Concomitant]
     Route: 048
     Dates: start: 20100328, end: 20100402
  19. PREDNISONE [Concomitant]
     Route: 048
     Dates: start: 20100531, end: 20100801
  20. TUMS [Concomitant]
     Indication: MINERAL SUPPLEMENTATION
     Route: 048
     Dates: start: 20100322, end: 20100630

REACTIONS (7)
  - ABDOMINAL DISTENSION [None]
  - DYSPEPSIA [None]
  - HAEMOGLOBIN DECREASED [None]
  - INSOMNIA [None]
  - PRE-ECLAMPSIA [None]
  - PREMATURE LABOUR [None]
  - RED BLOOD CELL COUNT DECREASED [None]
